FAERS Safety Report 6730398-0 (Version None)
Quarter: 2010Q2

REPORT INFORMATION
  Report Type: 
  Country: None (occurrence: None)
  Receive Date: 20100518
  Receipt Date: 20100510
  Transmission Date: 20101027
  Serious: Yes (Hospitalization)
  Sender: FDA-Public Use
  Company Number: A0858934A

PATIENT
  Age: 75 Year
  Sex: Male

DRUGS (2)
  1. ADVAIR DISKUS 100/50 [Suspect]
     Indication: CHRONIC OBSTRUCTIVE PULMONARY DISEASE
     Dosage: 1PUFF TWICE PER DAY
     Route: 055
     Dates: start: 20091101
  2. SIMVASTATIN [Concomitant]

REACTIONS (3)
  - BRONCHITIS [None]
  - INFLUENZA [None]
  - UPPER RESPIRATORY TRACT CONGESTION [None]
